FAERS Safety Report 13823632 (Version 2)
Quarter: 2017Q3

REPORT INFORMATION
  Report Type: Spontaneous
  Country: BR (occurrence: BR)
  Receive Date: 20170802
  Receipt Date: 20170807
  Transmission Date: 20171127
  Serious: Yes (Other)
  Sender: FDA-Public Use
  Company Number: BR-AMGEN-BRASP2014001515

PATIENT
  Age: 42 Year
  Sex: Female
  Weight: 60 kg

DRUGS (2)
  1. ENBREL [Suspect]
     Active Substance: ETANERCEPT
     Indication: ANKYLOSING SPONDYLITIS
     Dosage: 50 MG, ONCE WEEKLY
     Route: 058
     Dates: start: 20131220
  2. PROFENID [Concomitant]
     Active Substance: KETOPROFEN
     Dosage: 1 TABLET (STRENGTH 200 MG), ONCE A DAY

REACTIONS (5)
  - Arrhythmia [Unknown]
  - Injection site swelling [Unknown]
  - Injection site erythema [Unknown]
  - Inappropriate schedule of drug administration [Unknown]
  - Injection site pruritus [Unknown]
